FAERS Safety Report 9788499 (Version 7)
Quarter: 2014Q1

REPORT INFORMATION
  Report Type: Report from Study
  Country: FR (occurrence: FR)
  Receive Date: 20131230
  Receipt Date: 20140313
  Transmission Date: 20141002
  Serious: Yes (Other)
  Sender: FDA-Public Use
  Company Number: FR-JNJFOC-20131212283

PATIENT
  Age: 65 Year
  Sex: Male
  Weight: 77 kg

DRUGS (2)
  1. ZYTIGA [Suspect]
     Indication: PROSTATE CANCER
     Dosage: CUMULATIVE DOSE 29000 MG
     Route: 048
     Dates: start: 20131119, end: 20131217
  2. PREDNISONE [Suspect]
     Indication: PROSTATE CANCER
     Dosage: CUMULATIVE DOSE 285 MG
     Route: 048
     Dates: start: 20131119, end: 20131218

REACTIONS (1)
  - Transaminases increased [Recovered/Resolved]
